FAERS Safety Report 7436954-9 (Version None)
Quarter: 2011Q2

REPORT INFORMATION
  Report Type: 
  Country: None (occurrence: None)
  Receive Date: 20110426
  Receipt Date: 20110413
  Transmission Date: 20111010
  Serious: Yes (Hospitalization)
  Sender: FDA-Public Use
  Company Number: CH-ELI_LILLY_AND_COMPANY-CH201104004684

PATIENT
  Age: 53 Year
  Sex: Female

DRUGS (10)
  1. ACETAMINOPHEN [Concomitant]
     Indication: SOMATOFORM DISORDER
  2. VENLAFAXINE HCL [Concomitant]
     Indication: DEPRESSION
     Dosage: UNK, UNKNOWN
  3. VENLAFAXINE HCL [Concomitant]
     Dosage: 225 MG, QD
  4. FLUCTINE [Suspect]
     Indication: DEPRESSION
     Dosage: 20 MG, QD
  5. ANAFRANIL [Concomitant]
     Dosage: 225 MG, QD
  6. ANAFRANIL [Concomitant]
     Dosage: UNK, UNKNOWN
  7. NEXIUM [Concomitant]
     Dosage: 20 MG, QD
  8. ANXIOLYTICS [Concomitant]
     Indication: ANXIETY
  9. STILNOX [Concomitant]
     Dosage: 12.5 MG, QD
  10. ANALGESICS [Concomitant]
     Indication: PAIN

REACTIONS (8)
  - DEPRESSION [None]
  - PSYCHIATRIC SYMPTOM [None]
  - DRUG INEFFECTIVE [None]
  - SUICIDAL IDEATION [None]
  - OBESITY [None]
  - MOBILITY DECREASED [None]
  - PAIN [None]
  - DRUG DEPENDENCE [None]
